FAERS Safety Report 17163874 (Version 1)
Quarter: 2019Q4

REPORT INFORMATION
  Report Type: Spontaneous
  Country: US (occurrence: US)
  Receive Date: 20191217
  Receipt Date: 20191217
  Transmission Date: 20200122
  Serious: Yes (Other)
  Sender: FDA-Public Use
  Company Number: US-AMGEN-USASP2019206806

PATIENT
  Sex: Female

DRUGS (1)
  1. PROLIA [Suspect]
     Active Substance: DENOSUMAB
     Indication: OSTEOPOROSIS
     Dosage: UNK
     Route: 065
     Dates: end: 2018

REACTIONS (5)
  - Thoracic vertebral fracture [Unknown]
  - Dental implantation [Recovered/Resolved]
  - Tooth extraction [Unknown]
  - Lumbar vertebral fracture [Unknown]
  - Arthritis [Unknown]

NARRATIVE: CASE EVENT DATE: 2019
